FAERS Safety Report 8066407-9 (Version None)
Quarter: 2012Q1

REPORT INFORMATION
  Report Type: 
  Country: None (occurrence: None)
  Receive Date: 20120124
  Receipt Date: 20120124
  Transmission Date: 20120608
  Serious: No
  Sender: FDA-Public Use
  Company Number: None

PATIENT
  Age: 8 Year
  Sex: Male
  Weight: 29.029 kg

DRUGS (4)
  1. VYVANSE [Concomitant]
  2. BUDESONIDE [Concomitant]
     Route: 048
  3. LANSOPRAZOLE [Suspect]
     Indication: GASTROOESOPHAGEAL REFLUX DISEASE
     Dosage: 30 MG QD
     Route: 048
     Dates: start: 20110826, end: 20111212
  4. LANSOPRAZOLE [Suspect]
     Indication: EOSINOPHILIC OESOPHAGITIS
     Dosage: 30 MG QD
     Route: 048
     Dates: start: 20110826, end: 20111212

REACTIONS (1)
  - ALOPECIA AREATA [None]
